FAERS Safety Report 19309055 (Version 3)
Quarter: 2021Q3

REPORT INFORMATION
  Report Type: Spontaneous
  Country: US (occurrence: US)
  Receive Date: 20210526
  Receipt Date: 20210721
  Transmission Date: 20211014
  Serious: Yes (Other)
  Sender: FDA-Public Use
  Company Number: US-PFIZER INC-2021548181

PATIENT

DRUGS (1)
  1. PREMARIN [Suspect]
     Active Substance: ESTROGENS, CONJUGATED
     Dosage: 0.5 MG, 2X/WEEK

REACTIONS (5)
  - Escherichia urinary tract infection [Unknown]
  - Cystitis escherichia [Unknown]
  - Drug resistance [Unknown]
  - Wrong technique in device usage process [Unknown]
  - Device issue [Unknown]
